FAERS Safety Report 6248060-X (Version None)
Quarter: 2009Q2

REPORT INFORMATION
  Report Type: 
  Country: None (occurrence: None)
  Receive Date: 20090628
  Receipt Date: 20090615
  Transmission Date: 20091009
  Serious: Yes (Other)
  Sender: FDA-Public Use
  Company Number: JP-ALLERGAN-0908896US

PATIENT
  Sex: Male

DRUGS (3)
  1. MIROL [Suspect]
     Indication: GLAUCOMA
     Route: 047
  2. XALATAN [Concomitant]
     Indication: DRUG USE FOR UNKNOWN INDICATION
     Route: 047
  3. DETANTOL [Concomitant]
     Indication: DRUG USE FOR UNKNOWN INDICATION
     Route: 047

REACTIONS (3)
  - BLEPHARITIS [None]
  - DERMATITIS CONTACT [None]
  - LEUKODERMA [None]
